FAERS Safety Report 4775952-0 (Version None)
Quarter: 2005Q3

REPORT INFORMATION
  Report Type: 
  Country: None (occurrence: None)
  Receive Date: 20050922
  Receipt Date: 20050902
  Transmission Date: 20060218
  Serious: Yes (Other)
  Sender: FDA-Public Use
  Company Number: JP-JPN-A20052115

PATIENT
  Age: 22 Year
  Sex: Male

DRUGS (3)
  1. PAXIL [Suspect]
     Indication: POST-TRAUMATIC STRESS DISORDER
     Route: 048
     Dates: start: 20050629
  2. MEILAX [Concomitant]
     Route: 048
     Dates: start: 20050629
  3. MEILAX [Concomitant]
     Dosage: 3MG PER DAY
     Route: 048
     Dates: start: 20050715

REACTIONS (3)
  - MALAISE [None]
  - SOMNOLENCE [None]
  - SUICIDAL IDEATION [None]
